FAERS Safety Report 5004372-9 (Version None)
Quarter: 2006Q2

REPORT INFORMATION
  Report Type: 
  Country: None (occurrence: None)
  Receive Date: 20060517
  Receipt Date: 20060510
  Transmission Date: 20061013
  Serious: Yes (Hospitalization)
  Sender: FDA-Public Use
  Company Number: PHEH2006US06176

PATIENT
  Age: 63 Year
  Sex: Male

DRUGS (17)
  1. CYCLOSPORINE [Suspect]
     Indication: RENAL TRANSPLANT
     Dosage: 250 MG, QD
     Route: 048
     Dates: start: 20060201
  2. MYCOPHENOLATE MOFETIL [Suspect]
     Route: 048
     Dates: start: 20060119
  3. PREDNISONE TAB [Concomitant]
     Route: 048
     Dates: start: 20060121
  4. BACTRIM [Concomitant]
  5. DIFLUCAN [Concomitant]
  6. COLACE [Concomitant]
     Dates: start: 20060120
  7. LIPITOR [Concomitant]
     Dates: start: 20060121
  8. RENAGEL [Concomitant]
     Dates: start: 20060124
  9. IMDUR [Concomitant]
     Dates: start: 20060125
  10. METOPROLOL TARTRATE [Concomitant]
     Dosage: UNK, UNK
     Dates: start: 20060126
  11. TYLENOL W/ CODEINE NO. 3 [Concomitant]
     Dosage: UNK, UNK
     Dates: start: 20060127
  12. PROSOM [Concomitant]
     Dosage: UNK, UNK
     Dates: start: 20060131
  13. NORVASC [Concomitant]
     Dosage: UNK, UNK
     Dates: start: 20060131
  14. DARBEPOETIN ALFA [Concomitant]
     Dosage: UNK, UNK
     Dates: start: 20060131
  15. INSULIN INSULATARD NPH NORDISK [Concomitant]
  16. PLAVIX [Concomitant]
     Dosage: UNK, UNK
     Dates: start: 20060204
  17. ASPIRIN [Concomitant]
     Dosage: UNK, UNK
     Dates: start: 20060204

REACTIONS (5)
  - ANAEMIA [None]
  - ASTHENIA [None]
  - HAEMATOCHEZIA [None]
  - LARGE INTESTINAL ULCER [None]
  - OCCULT BLOOD POSITIVE [None]
